FAERS Safety Report 5469481-9 (Version None)
Quarter: 2007Q3

REPORT INFORMATION
  Report Type: 
  Country: None (occurrence: None)
  Receive Date: 20070925
  Receipt Date: 20070925
  Transmission Date: 20080115
  Serious: Yes (Hospitalization)
  Sender: FDA-Public Use
  Company Number: None

PATIENT
  Age: 87 Year
  Sex: Male
  Weight: 102 kg

DRUGS (1)
  1. NAFCILLIN SODIUM [Suspect]
     Indication: STAPHYLOCOCCAL BACTERAEMIA
     Dosage: 2 GRAM Q4H IV
     Route: 042
     Dates: start: 20070914, end: 20070918

REACTIONS (4)
  - BENIGN PROSTATIC HYPERPLASIA [None]
  - BLOOD CREATININE INCREASED [None]
  - CONDITION AGGRAVATED [None]
  - INCONTINENCE [None]
